FAERS Safety Report 5745411-7 (Version None)
Quarter: 2008Q2

REPORT INFORMATION
  Report Type: 
  Country: None (occurrence: None)
  Receive Date: 20080521
  Receipt Date: 20080514
  Transmission Date: 20081010
  Serious: Yes (Hospitalization)
  Sender: FDA-Public Use
  Company Number: US-BRISTOL-MYERS SQUIBB COMPANY-14155907

PATIENT
  Age: 77 Year
  Sex: Male
  Weight: 109 kg

DRUGS (6)
  1. COUMADIN [Interacting]
     Dosage: 6 MG FOR 8-10 YRS, DOSE DECREASED TO 5 MG ON 25MAR08 AND CONTINUING.
     Route: 048
  2. OMEGA 3 FISH OIL [Interacting]
     Indication: HIGH DENSITY LIPOPROTEIN INCREASED
     Route: 048
     Dates: start: 20080318
  3. ACTOS [Suspect]
     Indication: TYPE 2 DIABETES MELLITUS
     Route: 048
  4. COREG [Concomitant]
     Indication: HEART RATE IRREGULAR
     Route: 048
     Dates: start: 20070101, end: 20070101
  5. FLOMAX [Concomitant]
     Indication: PROSTATOMEGALY
     Route: 048
     Dates: start: 20070101
  6. MOTRIN [Concomitant]
     Indication: PAIN
     Dosage: 800 MG BID TO TID.
     Route: 048
     Dates: start: 20020101

REACTIONS (6)
  - APPENDICITIS [None]
  - DIABETES MELLITUS INADEQUATE CONTROL [None]
  - DRUG EFFECT INCREASED [None]
  - DRUG INTERACTION [None]
  - HEART RATE IRREGULAR [None]
  - PROTHROMBIN TIME PROLONGED [None]
